FAERS Safety Report 14227113 (Version 1)
Quarter: 2017Q4

REPORT INFORMATION
  Report Type: Spontaneous
  Country: GB (occurrence: GB)
  Receive Date: 20171127
  Receipt Date: 20171127
  Transmission Date: 20180321
  Serious: Yes (Death)
  Sender: FDA-Public Use
  Company Number: GB-TEVA-2017-GB-826053

PATIENT
  Sex: Male

DRUGS (4)
  1. CLONAZEPAM. [Suspect]
     Active Substance: CLONAZEPAM
     Route: 065
  2. METAMFETAMINE [Concomitant]
     Active Substance: METHAMPHETAMINE
     Route: 065
  3. AMFETAMINE [Concomitant]
     Active Substance: AMPHETAMINE
     Route: 065
  4. LYRICA [Suspect]
     Active Substance: PREGABALIN
     Route: 065

REACTIONS (2)
  - Toxicity to various agents [Fatal]
  - Drug interaction [Fatal]
